FAERS Safety Report 7233606-5 (Version None)
Quarter: 2011Q1

REPORT INFORMATION
  Report Type: 
  Country: None (occurrence: None)
  Receive Date: 20110119
  Receipt Date: 20100728
  Transmission Date: 20110831
  Serious: No
  Sender: FDA-Public Use
  Company Number: US-PFIZER INC-2010095907

PATIENT
  Sex: Female
  Weight: 59 kg

DRUGS (13)
  1. CALTRATE [Concomitant]
     Dosage: TWO TABLETS IN THE MORNING
     Route: 048
  2. COSOPT [Concomitant]
     Indication: GLAUCOMA
     Dosage: ONE DROP IN EACH EYE TWICE DALIY
     Route: 047
  3. ALENDRONATE SODIUM [Concomitant]
     Indication: OSTEOPOROSIS
     Dosage: 70 MG, ONCE WEEKLY
     Route: 048
  4. LUTEIN [Concomitant]
     Dosage: 7 MG, 1X/DAY
     Route: 048
  5. VITAMIN A [Concomitant]
     Dosage: 5000 IU, 1X/DAY
     Route: 048
  6. VITAMIN D [Concomitant]
     Dosage: 400 IU, 1X/DAY
     Route: 048
  7. CENTRUM SILVER [Concomitant]
     Dosage: ONE PILL DAILY
     Route: 048
  8. ASCORBIC ACID [Concomitant]
     Dosage: 500 MG, 1X/DAY
     Route: 048
  9. VITAMIN E [Concomitant]
     Dosage: 400 IU, 1X/DAY
     Route: 048
  10. AROMASIN [Suspect]
     Indication: BREAST CANCER
     Dosage: 25 MG, 1X/DAY
     Route: 048
     Dates: start: 20100706, end: 20100720
  11. BISOPROLOL FUMARATE [Concomitant]
     Indication: HYPERTENSION
     Dosage: 5 MG, 1X/DAY
     Route: 048
  12. PRAVASTATIN [Concomitant]
     Indication: BLOOD CHOLESTEROL INCREASED
     Dosage: 80 MG, 1X/DAY
     Route: 048
  13. XALATAN [Concomitant]
     Dosage: 0.005 %, 1X/DAY AT BED TIME

REACTIONS (3)
  - LIP SWELLING [None]
  - PRURITUS GENERALISED [None]
  - URTICARIA [None]
